FAERS Safety Report 23867300 (Version 1)
Quarter: 2024Q2

REPORT INFORMATION
  Report Type: Spontaneous
  Country: US (occurrence: US)
  Receive Date: 20240517
  Receipt Date: 20240517
  Transmission Date: 20240716
  Serious: Yes (Other)
  Sender: FDA-Public Use
  Company Number: US-BAYER-2024A071977

PATIENT
  Age: 69 Year
  Sex: Female

DRUGS (1)
  1. TINACTIN [Suspect]
     Active Substance: TOLNAFTATE
     Dosage: 1 SPRAY AT NIGHT IN BOTH FEET
     Route: 061
     Dates: end: 202404

REACTIONS (2)
  - Breast cancer [Unknown]
  - Gastric cancer [Unknown]
